FAERS Safety Report 7492438-3 (Version None)
Quarter: 2011Q2

REPORT INFORMATION
  Report Type: 
  Country: None (occurrence: None)
  Receive Date: 20110519
  Receipt Date: 20110504
  Transmission Date: 20111010
  Serious: No
  Sender: FDA-Public Use
  Company Number: US-B.I. PHARMACEUTICALS,INC./RIDGEFIELD-2011-BP-08150BP

PATIENT
  Sex: Female

DRUGS (10)
  1. KLOR-CON [Concomitant]
     Dosage: 8 MEQ
  2. METOPROLOL TARTRATE [Concomitant]
     Dosage: 100 MG
  3. GABAPENTIN [Concomitant]
     Dosage: 900 MG
  4. PLAVIX [Concomitant]
     Dosage: 75 MG
  5. LISINOPRIL [Concomitant]
     Dosage: 25 MG
  6. SIMVASTATIN [Concomitant]
     Dosage: 20 MG
  7. BUMEX [Concomitant]
     Dosage: 2 MG
  8. TRAMADOL HCL [Concomitant]
  9. PRADAXA [Suspect]
     Indication: ANTICOAGULANT THERAPY
     Dosage: 300 MG
  10. ISOSORB [Concomitant]
     Dosage: 60 MG

REACTIONS (6)
  - EYE PRURITUS [None]
  - BURNING SENSATION [None]
  - RASH MACULAR [None]
  - NERVOUSNESS [None]
  - PRURITUS [None]
  - EYE IRRITATION [None]
